FAERS Safety Report 8737942 (Version 2)
Quarter: 2012Q4

REPORT INFORMATION
  Report Type: 
  Country: FR (occurrence: FR)
  Receive Date: 20120823
  Receipt Date: 20120907
  Transmission Date: 20130627
  Serious: Yes (Life-Threatening)
  Sender: FDA-Public Use
  Company Number: FR-009507513-1208FRA005579

PATIENT

DRUGS (12)
  1. JANUMET [Suspect]
     Indication: TYPE 2 DIABETES MELLITUS
     Dosage: 100mg-2000
     Route: 048
     Dates: end: 20120716
  2. JANUMET [Suspect]
     Indication: TYPE 2 DIABETES MELLITUS
  3. PROFENID [Suspect]
     Indication: SCIATICA
     Dosage: UNK
     Route: 042
     Dates: start: 20120710, end: 20120711
  4. PROFENID [Suspect]
     Dosage: 100 mg, bid
     Route: 048
     Dates: start: 20120712, end: 20120714
  5. TELMISARTAN [Suspect]
     Indication: HYPERTENSION
     Dosage: 80 mg, qd
     Route: 048
     Dates: end: 20120716
  6. CELIPROLOL HYDROCHLORIDE [Suspect]
     Indication: HYPERTENSION
     Dosage: 200 mg, qd
     Route: 048
     Dates: end: 20120716
  7. KARDEGIC [Concomitant]
     Route: 048
  8. CRESTOR [Concomitant]
     Route: 048
  9. ACETAMINOPHEN [Concomitant]
     Route: 048
  10. TRAMADOL HYDROCHLORIDE [Concomitant]
     Route: 048
  11. ACTISKENAN [Concomitant]
     Route: 048
  12. METFORMIN HYDROCHLORIDE [Concomitant]
     Dosage: UNK

REACTIONS (5)
  - Cardiac arrest [Recovered/Resolved]
  - Hyperkalaemia [Recovered/Resolved]
  - Lactic acidosis [Recovered/Resolved]
  - Torsade de pointes [Recovered/Resolved]
  - Overdose [Recovered/Resolved]
